FAERS Safety Report 9490829 (Version 1)
Quarter: 2013Q3

REPORT INFORMATION
  Report Type: Spontaneous
  Country: US (occurrence: None)
  Receive Date: 20130828
  Receipt Date: 20130828
  Transmission Date: 20140515
  Serious: Yes (Life-Threatening, Hospitalization)
  Sender: FDA-Public Use
  Company Number: None

PATIENT
  Sex: Female
  Weight: 58.97 kg

DRUGS (4)
  1. NAVANE [Suspect]
     Indication: SCHIZOPHRENIA
     Dosage: 1 OR 2 PILLS ONCE DAILY, BEDTIME, MOUTH
     Route: 048
     Dates: start: 2000, end: 201202
  2. RISPERDAL [Suspect]
     Route: 048
  3. APP HALOPERIDOL DECANOATE [Concomitant]
  4. BOMBAY PRUNE JUICE LAXATIVE [Concomitant]

REACTIONS (9)
  - Bladder cancer [None]
  - Asthenia [None]
  - Agranulocytosis [None]
  - Drug effect decreased [None]
  - Haematuria [None]
  - Muscle spasms [None]
  - Cogwheel rigidity [None]
  - Transient ischaemic attack [None]
  - Fungal skin infection [None]
